FAERS Safety Report 7054239-X (Version None)
Quarter: 2010Q4

REPORT INFORMATION
  Report Type: 
  Country: None (occurrence: None)
  Receive Date: 20101020
  Receipt Date: 20101011
  Transmission Date: 20110411
  Serious: Yes (Other)
  Sender: FDA-Public Use
  Company Number: FI-PFIZER INC-2010128628

PATIENT
  Age: 63 Year
  Sex: Female

DRUGS (1)
  1. LIPITOR [Suspect]
     Dosage: 10 MG, UNK
     Dates: start: 20000101

REACTIONS (3)
  - ABDOMINAL PAIN UPPER [None]
  - CARDIAC DISCOMFORT [None]
  - OESOPHAGEAL DISCOMFORT [None]
